FAERS Safety Report 23878722 (Version 2)
Quarter: 2024Q2

REPORT INFORMATION
  Report Type: Spontaneous
  Country: US (occurrence: None)
  Receive Date: 20240521
  Receipt Date: 20240620
  Transmission Date: 20240716
  Serious: No
  Sender: FDA-Public Use
  Company Number: 2024A117552

PATIENT
  Sex: Female

DRUGS (2)
  1. BREZTRI [Suspect]
     Active Substance: BUDESONIDE\FORMOTEROL\GLYCOPYRROLATE
     Dates: start: 20240301
  2. SYMBICORT [Suspect]
     Active Substance: BUDESONIDE\FORMOTEROL FUMARATE DIHYDRATE
     Dosage: UNKNOWN UNKNOWN

REACTIONS (5)
  - Chronic obstructive pulmonary disease [Unknown]
  - Bronchiectasis [Unknown]
  - Device difficult to use [Unknown]
  - Incorrect dose administered by device [Unknown]
  - Wrong technique in product usage process [Unknown]
